FAERS Safety Report 6819150-5 (Version None)
Quarter: 2010Q3

REPORT INFORMATION
  Report Type: 
  Country: None (occurrence: None)
  Receive Date: 20100701
  Receipt Date: 20100620
  Transmission Date: 20110219
  Serious: No
  Sender: FDA-Public Use
  Company Number: 7007683

PATIENT
  Age: 35 Year
  Sex: Female

DRUGS (3)
  1. REBIF [Suspect]
     Indication: PRODUCT USED FOR UNKNOWN INDICATION
     Dosage: 44 MCG, 3 IN 1 WK, SUBCUTANEOUS
     Route: 058
     Dates: start: 20100502
  2. ACETAMINOPHEN [Concomitant]
  3. ALEVE [Concomitant]

REACTIONS (1)
  - INFLUENZA LIKE ILLNESS [None]
